FAERS Safety Report 7046914-8 (Version None)
Quarter: 2010Q4

REPORT INFORMATION
  Report Type: 
  Country: None (occurrence: None)
  Receive Date: 20101015
  Receipt Date: 20101012
  Transmission Date: 20110411
  Serious: Yes (Death, Hospitalization, Other)
  Sender: FDA-Public Use
  Company Number: PHHY2009CA24449

PATIENT
  Sex: Female

DRUGS (3)
  1. SANDOSTATIN LAR [Suspect]
     Indication: METASTATIC CARCINOID TUMOUR
     Dosage: 60 MG, QMO
     Route: 030
     Dates: start: 20061018
  2. SANDOSTATIN LAR [Suspect]
     Dosage: 80 MG, EVERY 4 WEEKS
     Route: 030
  3. SANDOSTATIN LAR [Suspect]
     Dosage: 100 MG, QMO
     Route: 030
     Dates: end: 20100921

REACTIONS (8)
  - ASTHENIA [None]
  - BLOOD PRESSURE SYSTOLIC INCREASED [None]
  - DEATH [None]
  - DIARRHOEA [None]
  - FATIGUE [None]
  - FLUSHING [None]
  - PROTEIN TOTAL DECREASED [None]
  - VOLUME BLOOD DECREASED [None]
